FAERS Safety Report 16085693 (Version 3)
Quarter: 2019Q2

REPORT INFORMATION
  Report Type: Spontaneous
  Country: GB (occurrence: GB)
  Receive Date: 20190318
  Receipt Date: 20190426
  Transmission Date: 20190711
  Serious: Yes (Death, Hospitalization, Other)
  Sender: FDA-Public Use
  Company Number: GB-BAYER-2018-196290

PATIENT
  Age: 71 Year
  Sex: Male

DRUGS (2)
  1. NEXAVAR [Suspect]
     Active Substance: SORAFENIB
     Indication: B-CELL LYMPHOMA
  2. NEXAVAR [Suspect]
     Active Substance: SORAFENIB
     Indication: COLON CANCER
     Dosage: UNK
     Dates: start: 201008, end: 2017

REACTIONS (5)
  - Death [Fatal]
  - Off label use [None]
  - Hospitalisation [None]
  - Product use in unapproved indication [None]
  - Respiratory tract haemorrhage [None]

NARRATIVE: CASE EVENT DATE: 20171223
